FAERS Safety Report 23519027 (Version 2)
Quarter: 2024Q1

REPORT INFORMATION
  Report Type: Spontaneous
  Country: US (occurrence: US)
  Receive Date: 20240213
  Receipt Date: 20240221
  Transmission Date: 20240410
  Serious: Yes (Hospitalization)
  Sender: FDA-Public Use
  Company Number: US-KARYOPHARM-2024KPT000098

PATIENT

DRUGS (33)
  1. XPOVIO [Suspect]
     Active Substance: SELINEXOR
     Indication: Plasma cell myeloma
     Dosage: 80 MG, WEEKLY
     Route: 048
     Dates: start: 20240122
  2. DEXAMETHASONE [Concomitant]
     Active Substance: DEXAMETHASONE
  3. LEVOTHYROXINE [Concomitant]
     Active Substance: LEVOTHYROXINE\LEVOTHYROXINE SODIUM
  4. ACYCLOVIR [Concomitant]
     Active Substance: ACYCLOVIR
  5. ASPIRIN [Concomitant]
     Active Substance: ASPIRIN
  6. ALPRAZOLAM [Concomitant]
     Active Substance: ALPRAZOLAM
  7. ATORVASTATIN [Concomitant]
     Active Substance: ATORVASTATIN
  8. BORTEZOMIB [Concomitant]
     Active Substance: BORTEZOMIB
  9. CARVEDILOL [Concomitant]
     Active Substance: CARVEDILOL
  10. CIMETIDINE [Concomitant]
     Active Substance: CIMETIDINE
  11. COLACE [Concomitant]
     Active Substance: DOCUSATE SODIUM
  12. CRESTOR [Concomitant]
     Active Substance: ROSUVASTATIN CALCIUM
  13. CYCLOPHOSPHAMIDE [Concomitant]
     Active Substance: CYCLOPHOSPHAMIDE
  14. CYMBALTA [Concomitant]
     Active Substance: DULOXETINE HYDROCHLORIDE
  15. DARZALEX [Concomitant]
     Active Substance: DARATUMUMAB
  16. DIOVAN [Concomitant]
     Active Substance: VALSARTAN
  17. DIPHENHYDRAMINE [Concomitant]
     Active Substance: DIPHENHYDRAMINE
  18. GRANISETRON [Concomitant]
     Active Substance: GRANISETRON
  19. HEPARIN [Concomitant]
     Active Substance: HEPARIN SODIUM
  20. HYDROCHLOROTHIAZIDE [Concomitant]
     Active Substance: HYDROCHLOROTHIAZIDE
  21. JARDIANCE [Concomitant]
     Active Substance: EMPAGLIFLOZIN
  22. LOPERAMIDE HYDROCHLORIDE [Concomitant]
     Active Substance: LOPERAMIDE HYDROCHLORIDE
  23. METHYLPREDNISOLONE [Concomitant]
     Active Substance: METHYLPREDNISOLONE
  24. MIDODRINE [Concomitant]
     Active Substance: MIDODRINE
  25. OCTREOTIDE [Concomitant]
     Active Substance: OCTREOTIDE\OCTREOTIDE ACETATE
  26. POMALYST [Concomitant]
     Active Substance: POMALIDOMIDE
  27. OMEPRAZOLE [Concomitant]
     Active Substance: OMEPRAZOLE
  28. RENVELA [Concomitant]
     Active Substance: SEVELAMER CARBONATE
  29. REVLIMID [Concomitant]
     Active Substance: LENALIDOMIDE
  30. VELCADE [Concomitant]
     Active Substance: BORTEZOMIB
  31. ZARXIO [Concomitant]
     Active Substance: FILGRASTIM-SNDZ
  32. FERRLECIT [Concomitant]
     Active Substance: SODIUM FERRIC GLUCONATE COMPLEX
  33. ZETIA [Concomitant]
     Active Substance: EZETIMIBE

REACTIONS (3)
  - Femur fracture [Unknown]
  - Upper limb fracture [Unknown]
  - Nausea [Unknown]

NARRATIVE: CASE EVENT DATE: 20240101
